FAERS Safety Report 10754937 (Version 1)
Quarter: 2015Q1

REPORT INFORMATION
  Report Type: Spontaneous
  Country: US (occurrence: US)
  Receive Date: 20150202
  Receipt Date: 20150202
  Transmission Date: 20150721
  Serious: Yes (Hospitalization)
  Sender: FDA-Public Use
  Company Number: US-PFIZER INC-2015038723

PATIENT
  Sex: Female

DRUGS (1)
  1. LYRICA [Suspect]
     Active Substance: PREGABALIN
     Indication: FIBROMYALGIA
     Dosage: UNK

REACTIONS (7)
  - Asthenia [Unknown]
  - Depression [Unknown]
  - Drug ineffective [Unknown]
  - Feeling abnormal [Unknown]
  - Feelings of worthlessness [Unknown]
  - Frustration [Unknown]
  - Fatigue [Unknown]
